FAERS Safety Report 5815252-0 (Version None)
Quarter: 2008Q3

REPORT INFORMATION
  Report Type: 
  Country: None (occurrence: None)
  Receive Date: 20080718
  Receipt Date: 20080711
  Transmission Date: 20090109
  Serious: Yes (Hospitalization)
  Sender: FDA-Public Use
  Company Number: AU-BOEHRINGER INGELHEIM GMBH, GERMANY-2008-BP-10947AU

PATIENT
  Sex: Female

DRUGS (8)
  1. MOBIC [Suspect]
     Indication: OSTEOARTHRITIS
     Route: 048
  2. ATACAND [Suspect]
     Indication: ESSENTIAL HYPERTENSION
     Route: 048
     Dates: end: 20070904
  3. BACTRIM [Suspect]
     Indication: URINARY TRACT DISORDER
     Route: 048
     Dates: start: 20070819, end: 20070904
  4. UREX [Suspect]
     Route: 048
  5. CARDIZEM [Concomitant]
     Route: 048
  6. DIGOXIN [Concomitant]
  7. OXAZEPAM [Concomitant]
  8. WARFARIN SODIUM [Concomitant]

REACTIONS (3)
  - DYSPNOEA [None]
  - PRURITUS GENERALISED [None]
  - RENAL FAILURE CHRONIC [None]
